FAERS Safety Report 8050615-7 (Version None)
Quarter: 2012Q1

REPORT INFORMATION
  Report Type: 
  Country: None (occurrence: None)
  Receive Date: 20120117
  Receipt Date: 20120117
  Transmission Date: 20120608
  Serious: Yes (Hospitalization)
  Sender: FDA-Public Use
  Company Number: None

PATIENT
  Sex: Female

DRUGS (2)
  1. PEGASYS [Suspect]
     Indication: HEPATITIS C
     Dosage: 180 MG
     Route: 058
  2. INCIVEK [Concomitant]
     Indication: HEPATITIS C
     Dosage: 750 MG
     Route: 048

REACTIONS (5)
  - FATIGUE [None]
  - GASTROINTESTINAL HAEMORRHAGE [None]
  - ANAEMIA [None]
  - MYOCARDIAL INFARCTION [None]
  - ASTHENIA [None]
